FAERS Safety Report 18929671 (Version 1)
Quarter: 2021Q1

REPORT INFORMATION
  Report Type: Spontaneous
  Country: CN (occurrence: CN)
  Receive Date: 20210223
  Receipt Date: 20210223
  Transmission Date: 20210420
  Serious: Yes (Other)
  Sender: FDA-Public Use
  Company Number: CN-BAYER-2021-071753

PATIENT
  Age: 58 Year
  Sex: Male
  Weight: 77 kg

DRUGS (1)
  1. GLUCOBAY [Suspect]
     Active Substance: ACARBOSE
     Indication: TYPE 2 DIABETES MELLITUS
     Dosage: 0.05 MG, TID
     Route: 048
     Dates: start: 20210116, end: 20210116

REACTIONS (3)
  - Abdominal distension [Recovered/Resolved]
  - Haemorrhage [Recovered/Resolved]
  - Flatulence [Recovered/Resolved]

NARRATIVE: CASE EVENT DATE: 20210116
